FAERS Safety Report 24097475 (Version 1)
Quarter: 2024Q3

REPORT INFORMATION
  Report Type: Spontaneous
  Country: US (occurrence: None)
  Receive Date: 20240715
  Receipt Date: 20240715
  Transmission Date: 20241017
  Serious: No
  Sender: Public
  Company Number: None

PATIENT
  Age: 67 Year
  Sex: Male

DRUGS (1)
  1. TAMSULOSIN [Suspect]
     Active Substance: TAMSULOSIN

REACTIONS (4)
  - Dizziness [None]
  - Brain fog [None]
  - Decreased activity [None]
  - Therapy cessation [None]

NARRATIVE: CASE EVENT DATE: 20240701
